FAERS Safety Report 4417775-8 (Version None)
Quarter: 2004Q2

REPORT INFORMATION
  Report Type: 
  Country: None (occurrence: None)
  Receive Date: 20040621
  Receipt Date: 20040519
  Transmission Date: 20050107
  Serious: No
  Sender: FDA-Public Use
  Company Number: PHEH2004US03833

PATIENT
  Age: 62 Year
  Sex: Female

DRUGS (4)
  1. ZOMETA [Suspect]
     Indication: METASTASES TO BONE
     Dosage: 4 MG EVERY 4 WEEKS IN 150CC NS, INTRAVENOUS
     Route: 042
     Dates: start: 20020404, end: 20040304
  2. DECADRON [Concomitant]
  3. HERCEPTIN [Concomitant]
  4. TAXOL [Concomitant]

REACTIONS (3)
  - APTYALISM [None]
  - DENTAL CARIES [None]
  - PERIODONTITIS [None]
